FAERS Safety Report 4884261-0 (Version None)
Quarter: 2005Q4

REPORT INFORMATION
  Report Type: 
  Country: None (occurrence: None)
  Receive Date: 20051201
  Receipt Date: 20050909
  Transmission Date: 20060501
  Serious: No
  Sender: FDA-Public Use
  Company Number: 2005PV002005

PATIENT
  Age: 50 Year
  Sex: Male
  Weight: 130.6359 kg

DRUGS (5)
  1. BYETTA [Suspect]
     Indication: DIABETES MELLITUS NON-INSULIN-DEPENDENT
     Dosage: 5 MCG; BID; SC
     Route: 058
     Dates: start: 20050722
  2. STARLIX [Concomitant]
  3. AMARYL [Concomitant]
  4. CHROMIUM PICOLINATE [Concomitant]
  5. AVANDIA [Concomitant]

REACTIONS (6)
  - BLOOD GLUCOSE INCREASED [None]
  - COUGH [None]
  - NASOPHARYNGITIS [None]
  - RHINORRHOEA [None]
  - SNEEZING [None]
  - WEIGHT DECREASED [None]
